FAERS Safety Report 9678355 (Version 1)
Quarter: 2013Q4

REPORT INFORMATION
  Report Type: Spontaneous
  Country: US (occurrence: US)
  Receive Date: 20131108
  Receipt Date: 20131108
  Transmission Date: 20140711
  Serious: Yes (Other)
  Sender: FDA-Public Use
  Company Number: US-TEVA-443294USA

PATIENT
  Age: 35 Month
  Sex: Female

DRUGS (3)
  1. FLECAINIDE [Suspect]
     Indication: SUPRAVENTRICULAR TACHYCARDIA
     Route: 065
  2. FLECAINIDE [Suspect]
     Dosage: MAX EXPOSURE 75 MG/KG
     Route: 048
  3. PROPRANOLOL [Concomitant]
     Indication: SUPRAVENTRICULAR TACHYCARDIA
     Route: 065

REACTIONS (5)
  - Toxicity to various agents [Recovered/Resolved]
  - Hyporesponsive to stimuli [Recovered/Resolved]
  - Electrocardiogram QRS complex prolonged [Recovered/Resolved]
  - Hypoperfusion [Recovered/Resolved]
  - Accidental exposure to product by child [Recovered/Resolved]
